FAERS Safety Report 17061478 (Version 1)
Quarter: 2019Q4

REPORT INFORMATION
  Report Type: Report from Study
  Country: US (occurrence: US)
  Receive Date: 20191121
  Receipt Date: 20191121
  Transmission Date: 20200122
  Serious: Yes (Hospitalization, Other)
  Sender: FDA-Public Use
  Company Number: US-BAYER-2019-179813

PATIENT
  Age: 47 Year
  Sex: Female

DRUGS (3)
  1. STIVARGA [Suspect]
     Active Substance: REGORAFENIB
     Indication: COLORECTAL CANCER
     Dosage: 120 MG DAILY
     Route: 048
     Dates: start: 20190930, end: 20191005
  2. STIVARGA [Suspect]
     Active Substance: REGORAFENIB
     Indication: COLORECTAL CANCER
     Dosage: 40MG DAILY BY MOUTH
     Route: 048
     Dates: start: 20190916, end: 201909
  3. STIVARGA [Suspect]
     Active Substance: REGORAFENIB
     Indication: COLORECTAL CANCER
     Dosage: 160 MG DAILY
     Route: 048
     Dates: start: 201909, end: 201909

REACTIONS (13)
  - Inflammation [Recovering/Resolving]
  - Dry mouth [Not Recovered/Not Resolved]
  - Headache [Recovered/Resolved]
  - Pain in extremity [None]
  - Gait inability [Not Recovered/Not Resolved]
  - Decreased appetite [Recovered/Resolved]
  - Off label use [None]
  - Skin ulcer [None]
  - Weight decreased [Recovered/Resolved]
  - Blood pressure fluctuation [Recovered/Resolved]
  - Thirst decreased [Recovering/Resolving]
  - Abdominal pain upper [Not Recovered/Not Resolved]
  - Diarrhoea [Not Recovered/Not Resolved]

NARRATIVE: CASE EVENT DATE: 201909
